FAERS Safety Report 11186763 (Version 1)
Quarter: 2015Q2

REPORT INFORMATION
  Report Type: Spontaneous
  Country: JP (occurrence: JP)
  Receive Date: 20150613
  Receipt Date: 20150613
  Transmission Date: 20150821
  Serious: Yes (Other)
  Sender: FDA-Public Use
  Company Number: JP-MYLANLABS-2015M1019030

PATIENT

DRUGS (3)
  1. KETAMINE [Suspect]
     Active Substance: KETAMINE
     Indication: OFF LABEL USE
  2. LIDOCAINE. [Concomitant]
     Active Substance: LIDOCAINE
     Indication: PHANTOM PAIN
     Dosage: 200MG (3 MG/KG) INFUSED FOR 30 MINUTES
     Route: 065
  3. KETAMINE [Suspect]
     Active Substance: KETAMINE
     Indication: PHANTOM PAIN
     Dosage: 5MG
     Route: 042

REACTIONS (3)
  - Condition aggravated [Not Recovered/Not Resolved]
  - Hallucination [Recovering/Resolving]
  - Phantom pain [Not Recovered/Not Resolved]
